FAERS Safety Report 13251372 (Version 1)
Quarter: 2017Q1

REPORT INFORMATION
  Report Type: Spontaneous
  Country: FR (occurrence: FR)
  Receive Date: 20170220
  Receipt Date: 20170220
  Transmission Date: 20170428
  Serious: Yes (Other)
  Sender: FDA-Public Use
  Company Number: FR-ACCORD-048405

PATIENT
  Age: 82 Year
  Sex: Male

DRUGS (14)
  1. GALVUS [Concomitant]
     Active Substance: VILDAGLIPTIN
     Dosage: IN THE MORNING
  2. MAG [Concomitant]
     Dosage: 2 BAGS AT MIDDAY
  3. PRAVASTATINE ACCORD [Suspect]
     Active Substance: PRAVASTATIN SODIUM
     Indication: DYSLIPIDAEMIA
     Dosage: ONCE IN THE EVENING
     Route: 048
     Dates: start: 20170101, end: 20170112
  4. FORLAX [Concomitant]
     Active Substance: POLYETHYLENE GLYCOL 4000
     Dosage: STRENGTH: 4000, IN THE MORNING
  5. AMOXICILLIN. [Suspect]
     Active Substance: AMOXICILLIN
     Indication: CYSTITIS
     Route: 048
     Dates: start: 20170110, end: 20170113
  6. KARDEGIC [Concomitant]
     Active Substance: ASPIRIN LYSINE
     Dosage: AT MIDDAY
     Dates: end: 20170107
  7. FUMAFER [Concomitant]
     Active Substance: FERROUS FUMARATE
  8. PARACETAMOL [Concomitant]
     Active Substance: ACETAMINOPHEN
     Dosage: IN THE MORNING AND IN THE EVENING
  9. BISOPROLOL [Concomitant]
     Active Substance: BISOPROLOL
     Dosage: IN THE MORNING
  10. PLAVIX [Concomitant]
     Active Substance: CLOPIDOGREL BISULFATE
     Dosage: DAILY DOSE OF 75 MG IN THE MORNING
  11. CALCIDOSE [Concomitant]
     Active Substance: CALCIUM CARBONATE
     Dosage: IN THE MORNING AND IN THE EVENING
  12. HEPARIN [Concomitant]
     Active Substance: HEPARIN SODIUM
  13. LYRICA [Concomitant]
     Active Substance: PREGABALIN
     Route: 058
  14. UVEDOSE [Concomitant]
     Active Substance: CHOLECALCIFEROL
     Dosage: 1 VIALS EVERY 3 MONTHS

REACTIONS (4)
  - Cholestasis [Recovering/Resolving]
  - Drug-induced liver injury [Unknown]
  - Depression [Unknown]
  - Cell death [Recovering/Resolving]
